FAERS Safety Report 14885789 (Version 5)
Quarter: 2018Q4

REPORT INFORMATION
  Report Type: Report from Study
  Country: None (occurrence: US)
  Receive Date: 20180512
  Receipt Date: 20181112
  Transmission Date: 20190204
  Serious: Yes (Hospitalization)
  Sender: FDA-Public Use
  Company Number: US-ABBVIE-18K-163-2353202-00

PATIENT
  Sex: Female

DRUGS (2)
  1. HUMIRA [Suspect]
     Active Substance: ADALIMUMAB
     Indication: CROHN^S DISEASE
     Route: 058
     Dates: start: 201610
  2. HUMIRA [Suspect]
     Active Substance: ADALIMUMAB
     Route: 058
     Dates: end: 201804

REACTIONS (12)
  - Gastrointestinal inflammation [Unknown]
  - Nausea [Unknown]
  - Vomiting [Unknown]
  - Intestinal obstruction [Unknown]
  - Gastroenteritis viral [Unknown]
  - Crohn^s disease [Unknown]
  - Constipation [Unknown]
  - Defaecation urgency [Unknown]
  - Nasopharyngitis [Unknown]
  - Vomiting [Recovered/Resolved]
  - Nausea [Recovered/Resolved]
  - Dehydration [Recovered/Resolved]
